FAERS Safety Report 9336070 (Version 2)
Quarter: 2013Q4

REPORT INFORMATION
  Report Type: Spontaneous
  Country: US (occurrence: US)
  Receive Date: 20130607
  Receipt Date: 20131114
  Transmission Date: 20140711
  Serious: Yes (Death, Hospitalization)
  Sender: FDA-Public Use
  Company Number: US-B.I. PHARMACEUTICALS,INC./RIDGEFIELD-2013-BI-15609BP

PATIENT
  Age: 83 Year
  Sex: Female
  Weight: 56.7 kg

DRUGS (5)
  1. PRADAXA [Suspect]
     Indication: ANTICOAGULANT THERAPY
     Dates: start: 20110606, end: 20120526
  2. ZOLOFT [Concomitant]
     Dosage: 50 MG
     Route: 048
  3. LISINOPRIL [Concomitant]
     Dosage: 20 MG
     Route: 048
  4. ARICEPT [Concomitant]
     Dosage: 10 MG
     Route: 048
  5. CARVEDILOL [Concomitant]
     Dosage: 25 MG
     Route: 048

REACTIONS (3)
  - Upper gastrointestinal haemorrhage [Fatal]
  - Anaemia [Unknown]
  - Syncope [Unknown]
